FAERS Safety Report 16593434 (Version 3)
Quarter: 2019Q3

REPORT INFORMATION
  Report Type: Spontaneous
  Country: RO (occurrence: RO)
  Receive Date: 20190718
  Receipt Date: 20190827
  Transmission Date: 20191004
  Serious: Yes (Death, Other)
  Sender: FDA-Public Use
  Company Number: PHHY2019RO165325

PATIENT
  Age: 89 Year
  Sex: Male
  Weight: 68 kg

DRUGS (3)
  1. PARACETAMOL [Suspect]
     Active Substance: ACETAMINOPHEN
     Indication: LOCOMOTIVE SYNDROME
     Dosage: 1 DF,24 DF, QD
     Route: 048
     Dates: start: 2010
  2. AUGMENTIN [Suspect]
     Active Substance: AMOXICILLIN\CLAVULANATE POTASSIUM
     Indication: INFLAMMATION
     Dosage: 1 DF,24 DF, QD
     Route: 048
     Dates: start: 2010
  3. AUGMENTIN [Suspect]
     Active Substance: AMOXICILLIN\CLAVULANATE POTASSIUM
     Indication: LOCOMOTIVE SYNDROME

REACTIONS (7)
  - Drug ineffective [Not Recovered/Not Resolved]
  - Fluid retention [Recovered/Resolved with Sequelae]
  - Product use in unapproved indication [Unknown]
  - Death [Fatal]
  - Suffocation feeling [Recovered/Resolved with Sequelae]
  - Off label use [Unknown]
  - Intentional product use issue [Unknown]

NARRATIVE: CASE EVENT DATE: 2016
